FAERS Safety Report 19089722 (Version 2)
Quarter: 2021Q3

REPORT INFORMATION
  Report Type: Report from Study
  Country: US (occurrence: US)
  Receive Date: 20210403
  Receipt Date: 20210920
  Transmission Date: 20211014
  Serious: Yes (Other)
  Sender: FDA-Public Use
  Company Number: US-TAKEDA-2021TUS021126

PATIENT
  Age: 48 Year
  Sex: Female

DRUGS (2)
  1. BRIGATINIB [Suspect]
     Active Substance: BRIGATINIB
     Indication: NEUROFIBROMATOSIS
  2. BRIGATINIB [Suspect]
     Active Substance: BRIGATINIB
     Indication: BENIGN NEOPLASM
     Dosage: 90 MILLIGRAM, BID
     Route: 065
     Dates: start: 20210325

REACTIONS (9)
  - Exposure to SARS-CoV-2 [Recovered/Resolved]
  - Off label use [Unknown]
  - Myalgia [Recovered/Resolved]
  - Blood pressure increased [Recovered/Resolved]
  - Muscle spasms [Recovered/Resolved]
  - Neck pain [Recovered/Resolved]
  - Laboratory test abnormal [Recovered/Resolved]
  - Memory impairment [Recovered/Resolved]
  - Brain neoplasm [Recovered/Resolved]

NARRATIVE: CASE EVENT DATE: 20210325
